FAERS Safety Report 25182522 (Version 2)
Quarter: 2025Q2

REPORT INFORMATION
  Report Type: Report from Study
  Country: CA (occurrence: CA)
  Receive Date: 20250410
  Receipt Date: 20250417
  Transmission Date: 20250716
  Serious: Yes (Other)
  Sender: CELLTRION
  Company Number: CA-CELLTRION INC.-2024CA005394

PATIENT

DRUGS (1)
  1. RITUXIMAB-ABBS [Suspect]
     Active Substance: RITUXIMAB-ABBS
     Indication: Neurosarcoidosis
     Route: 042
     Dates: start: 20240624

REACTIONS (6)
  - Blood pressure increased [Unknown]
  - Oxygen saturation decreased [Unknown]
  - Stridor [Unknown]
  - Renal disorder [Unknown]
  - Dyspnoea [Unknown]
  - Off label use [Unknown]

NARRATIVE: CASE EVENT DATE: 20250410
